FAERS Safety Report 20869840 (Version 1)
Quarter: 2022Q2

REPORT INFORMATION
  Report Type: Report from Study
  Country: US (occurrence: US)
  Receive Date: 20220525
  Receipt Date: 20220525
  Transmission Date: 20220721
  Serious: Yes (Other)
  Sender: FDA-Public Use
  Company Number: US-BIOVITRUM-2022US02692

PATIENT
  Sex: Male

DRUGS (1)
  1. KINERET [Suspect]
     Active Substance: ANAKINRA
     Indication: Rheumatoid arthritis
     Route: 058
     Dates: start: 20220204

REACTIONS (5)
  - Renal impairment [Unknown]
  - Pain [Unknown]
  - Peripheral swelling [Unknown]
  - Feeling abnormal [Unknown]
  - Drug ineffective [Unknown]
